FAERS Safety Report 6416054-7 (Version None)
Quarter: 2009Q4

REPORT INFORMATION
  Report Type: 
  Country: None (occurrence: None)
  Receive Date: 20091027
  Receipt Date: 20091014
  Transmission Date: 20100525
  Serious: Yes (Hospitalization, Disabling)
  Sender: FDA-Public Use
  Company Number: US-ELI_LILLY_AND_COMPANY-US200910004137

PATIENT
  Sex: Female

DRUGS (1)
  1. PROZAC [Suspect]
     Dosage: 20 MG, UNKNOWN
     Route: 065

REACTIONS (3)
  - ABASIA [None]
  - CEREBROVASCULAR ACCIDENT [None]
  - SPEECH DISORDER [None]
